FAERS Safety Report 4416300-5 (Version None)
Quarter: 2004Q3

REPORT INFORMATION
  Report Type: 
  Country: None (occurrence: None)
  Receive Date: 20040805
  Receipt Date: 20040728
  Transmission Date: 20050211
  Serious: Yes (Other)
  Sender: FDA-Public Use
  Company Number: PHBS2004JP10168

PATIENT
  Age: 52 Year
  Sex: Male

DRUGS (12)
  1. BASILIXIMAB [Suspect]
     Indication: RENAL TRANSPLANT
     Dosage: 20 MG, ONCE/SINGLE
     Route: 065
  2. BASILIXIMAB [Suspect]
     Dosage: 20 MG, ONCE/SINGLE
     Route: 065
  3. TACROLIMUS [Suspect]
     Indication: RENAL TRANSPLANT
     Dosage: 6-4-3-2 MG/D
     Route: 065
  4. MYCOPHENOLATE MOFETIL [Concomitant]
     Indication: RENAL TRANSPLANT
     Dosage: 1000 MG/D
     Route: 065
  5. MYCOPHENOLATE MOFETIL [Concomitant]
     Dosage: 500 MG/D
     Route: 065
  6. ALG [Concomitant]
     Indication: RENAL TRANSPLANT
     Dosage: 500 MG/D
     Route: 065
  7. METHYLPREDNISOLONE [Concomitant]
     Indication: RENAL TRANSPLANT
     Dosage: 500 MG/D
     Route: 065
  8. METHYLPREDNISOLONE [Concomitant]
     Dosage: 8 MG/D
     Route: 065
  9. CYCLOSPORINE [Suspect]
     Indication: RENAL TRANSPLANT
     Dosage: 360 MG/D
     Route: 065
  10. CYCLOSPORINE [Suspect]
     Dosage: 200 MG/D
     Route: 065
  11. METHYLPREDNISOLONE [Suspect]
     Indication: KIDNEY TRANSPLANT REJECTION
     Dosage: 500 MG/D
     Route: 065
  12. AZATHIOPRINE [Concomitant]
     Dosage: 50 MG/D
     Route: 065

REACTIONS (11)
  - BLADDER CATHETERISATION [None]
  - BLADDER DISORDER [None]
  - BLOOD CREATININE INCREASED [None]
  - C-REACTIVE PROTEIN INCREASED [None]
  - CYTOMEGALOVIRUS INFECTION [None]
  - GRAFT COMPLICATION [None]
  - KIDNEY TRANSPLANT REJECTION [None]
  - PYREXIA [None]
  - PYURIA [None]
  - URINARY TRACT INFECTION BACTERIAL [None]
  - VESICOURETERIC REFLUX [None]
